FAERS Safety Report 21201084 (Version 1)
Quarter: 2022Q3

REPORT INFORMATION
  Report Type: Report from Study
  Country: US (occurrence: US)
  Receive Date: 20220811
  Receipt Date: 20220811
  Transmission Date: 20221026
  Serious: No
  Sender: FDA-Public Use
  Company Number: US-AURINIA PHARMACEUTICALS INC.-AUR-000940

PATIENT
  Age: 43 Year
  Sex: Female

DRUGS (1)
  1. LUPKYNIS [Suspect]
     Active Substance: VOCLOSPORIN
     Indication: Lupus nephritis
     Dosage: 23.7 MILLIGRAM, BID
     Route: 048
     Dates: start: 20210609

REACTIONS (13)
  - Protein urine present [Unknown]
  - Blood urine present [Unknown]
  - White blood cell count decreased [Unknown]
  - Urine protein/creatinine ratio increased [Unknown]
  - Attention deficit hyperactivity disorder [Unknown]
  - Blood creatinine increased [Unknown]
  - Blood urea increased [Unknown]
  - Anxiety [Unknown]
  - Aphonia [Not Recovered/Not Resolved]
  - Nasopharyngitis [Not Recovered/Not Resolved]
  - Arthropathy [Unknown]
  - Anaemia [Unknown]
  - Glomerular filtration rate decreased [Unknown]

NARRATIVE: CASE EVENT DATE: 20210924
